FAERS Safety Report 6849508-X (Version None)
Quarter: 2010Q3

REPORT INFORMATION
  Report Type: 
  Country: None (occurrence: None)
  Receive Date: 20100716
  Receipt Date: 20080207
  Transmission Date: 20110219
  Serious: No
  Sender: FDA-Public Use
  Company Number: US-PFIZER INC-2007082284

PATIENT
  Sex: Female
  Weight: 67.13 kg

DRUGS (5)
  1. CHANTIX [Suspect]
     Indication: TOBACCO USER
     Dates: start: 20070111
  2. CHANTIX [Suspect]
     Indication: SPIROMETRY ABNORMAL
  3. DIOVAN HCT [Concomitant]
  4. RHINOCORT [Concomitant]
  5. ZITHROMAX [Concomitant]

REACTIONS (2)
  - DRUG DOSE OMISSION [None]
  - WEIGHT INCREASED [None]
